FAERS Safety Report 7550915-0 (Version None)
Quarter: 2011Q2

REPORT INFORMATION
  Report Type: 
  Country: None (occurrence: None)
  Receive Date: 20110609
  Receipt Date: 20110524
  Transmission Date: 20111010
  Serious: Yes (Other)
  Sender: FDA-Public Use
  Company Number: 927899

PATIENT
  Age: 57 Year
  Sex: Female
  Weight: 117 kg

DRUGS (4)
  1. AMIDATE [Suspect]
     Indication: SEDATION
     Dosage: 40 MG, X1, INTRAVENOUS (NOT OTHERWISE SPECIFIED) ; 40 MG, X1, INTRAVENOUS (NOT OTHERWISE SPECIFIED)
     Route: 042
     Dates: start: 20110523, end: 20110523
  2. AMIDATE [Suspect]
     Indication: ENDOTRACHEAL INTUBATION
     Dosage: 40 MG, X1, INTRAVENOUS (NOT OTHERWISE SPECIFIED) ; 40 MG, X1, INTRAVENOUS (NOT OTHERWISE SPECIFIED)
     Route: 042
     Dates: start: 20110523, end: 20110523
  3. AMIDATE [Suspect]
     Indication: SEDATION
     Dosage: 40 MG, X1, INTRAVENOUS (NOT OTHERWISE SPECIFIED) ; 40 MG, X1, INTRAVENOUS (NOT OTHERWISE SPECIFIED)
     Route: 042
     Dates: start: 20110523, end: 20110523
  4. AMIDATE [Suspect]
     Indication: ENDOTRACHEAL INTUBATION
     Dosage: 40 MG, X1, INTRAVENOUS (NOT OTHERWISE SPECIFIED) ; 40 MG, X1, INTRAVENOUS (NOT OTHERWISE SPECIFIED)
     Route: 042
     Dates: start: 20110523, end: 20110523

REACTIONS (3)
  - GRAND MAL CONVULSION [None]
  - BLOOD PRESSURE DECREASED [None]
  - HYPOXIA [None]
